FAERS Safety Report 11576535 (Version 3)
Quarter: 2019Q3

REPORT INFORMATION
  Report Type: Spontaneous
  Country: US (occurrence: US)
  Receive Date: 20150916
  Receipt Date: 20190918
  Transmission Date: 20191004
  Serious: Yes (Other)
  Sender: FDA-Public Use
  Company Number: US-ELI_LILLY_AND_COMPANY-US201305005900

PATIENT
  Sex: Female
  Weight: 40.82 kg

DRUGS (3)
  1. HUMALOG [Suspect]
     Active Substance: INSULIN LISPRO
     Indication: TYPE 2 DIABETES MELLITUS
     Dosage: 1 U, BID
     Route: 058
     Dates: start: 20130214
  2. HUMALOG [Suspect]
     Active Substance: INSULIN LISPRO
     Dosage: UNK UNK, PRN
     Route: 058
  3. LEVEMIR [Concomitant]
     Active Substance: INSULIN DETEMIR
     Indication: PRODUCT USED FOR UNKNOWN INDICATION
     Dosage: UNK, UNKNOWN

REACTIONS (15)
  - Macular oedema [Unknown]
  - Palpitations [Unknown]
  - Dyspnoea [Unknown]
  - Scar [Unknown]
  - Retinopathy [Unknown]
  - Gastrointestinal disorder [Unknown]
  - Somnolence [Unknown]
  - Rash pruritic [Unknown]
  - Fat tissue decreased [Unknown]
  - Thyroid disorder [Unknown]
  - Blood glucose increased [Unknown]
  - Asthenia [Unknown]
  - Blood glucose increased [Recovering/Resolving]
  - Nasal congestion [Unknown]
  - Diarrhoea [Unknown]

NARRATIVE: CASE EVENT DATE: 20190905
